FAERS Safety Report 6706861-5 (Version None)
Quarter: 2010Q2

REPORT INFORMATION
  Report Type: 
  Country: None (occurrence: None)
  Receive Date: 20100503
  Receipt Date: 20100421
  Transmission Date: 20101027
  Serious: Yes (Death)
  Sender: FDA-Public Use
  Company Number: US-ELI_LILLY_AND_COMPANY-US201003005892

PATIENT
  Sex: Male
  Weight: 97.506 kg

DRUGS (8)
  1. ZYPREXA [Suspect]
     Indication: DEPRESSION
     Dosage: 10 MG, EACH MORNING
     Dates: start: 20070401
  2. ZYPREXA [Suspect]
     Dosage: 20 MG, EACH EVENING
     Dates: start: 20070401
  3. HALDOL [Concomitant]
     Dosage: 10 MG, EACH EVENING
     Dates: start: 20070401, end: 20071101
  4. DEPAKOTE [Concomitant]
     Dates: start: 20010501
  5. ZOLOFT [Concomitant]
     Dosage: 100 MG, EACH MORNING
     Dates: start: 20070401
  6. EFFEXOR [Concomitant]
     Dates: start: 20010501
  7. TEMAZEPAM [Concomitant]
     Dosage: 30 MG, EACH EVENING
  8. COGENTIN [Concomitant]
     Dosage: 1 MG, 2/D

REACTIONS (3)
  - DRUG TOXICITY [None]
  - OFF LABEL USE [None]
  - OVERDOSE [None]
